FAERS Safety Report 19370341 (Version 2)
Quarter: 2022Q1

REPORT INFORMATION
  Report Type: Spontaneous
  Country: US (occurrence: US)
  Receive Date: 20210603
  Receipt Date: 20220114
  Transmission Date: 20220423
  Serious: Yes (Other)
  Sender: FDA-Public Use
  Company Number: US-GILEAD-2021-0534099

PATIENT
  Age: 58 Year
  Sex: Male

DRUGS (68)
  1. ATRIPLA [Suspect]
     Active Substance: EFAVIRENZ\EMTRICITABINE\TENOFOVIR DISOPROXIL FUMARATE
     Indication: HIV infection
     Dosage: UNK
     Route: 048
     Dates: start: 2009, end: 20160209
  2. BIKTARVY [Concomitant]
     Active Substance: BICTEGRAVIR SODIUM\EMTRICITABINE\TENOFOVIR ALAFENAMIDE FUMARATE
  3. TRIUMEQ [Concomitant]
     Active Substance: ABACAVIR SULFATE\DOLUTEGRAVIR SODIUM\LAMIVUDINE
  4. ALLOPURINOL [Concomitant]
     Active Substance: ALLOPURINOL
  5. ATORVASTATIN [Concomitant]
     Active Substance: ATORVASTATIN
  6. BUPROPION [Concomitant]
     Active Substance: BUPROPION
  7. CALCIUM [Concomitant]
     Active Substance: CALCIUM
  8. CHANTIX [Concomitant]
     Active Substance: VARENICLINE TARTRATE
  9. CHLORHEXIDINE [Concomitant]
     Active Substance: CHLORHEXIDINE
  10. CIPRO HC [Concomitant]
     Active Substance: CIPROFLOXACIN HYDROCHLORIDE\HYDROCORTISONE
  11. CLOBETASOL [Concomitant]
     Active Substance: CLOBETASOL
  12. CLOPIDOGREL [Concomitant]
     Active Substance: CLOPIDOGREL BISULFATE
  13. CYCLOBENZAPRINE [Concomitant]
     Active Substance: CYCLOBENZAPRINE
  14. VITAMIN D NOS [Concomitant]
     Active Substance: VITAMIN D NOS
  15. DESONATE [Concomitant]
     Active Substance: DESONIDE
  16. DICYCLOMINE [Concomitant]
     Active Substance: DICYCLOMINE HYDROCHLORIDE
  17. DOXYCYCLINE [Concomitant]
     Active Substance: DOXYCYCLINE
  18. FAMOTIDINE [Concomitant]
     Active Substance: FAMOTIDINE
  19. FLUOROURACIL [Concomitant]
     Active Substance: FLUOROURACIL
  20. HIBICLENS [Concomitant]
     Active Substance: CHLORHEXIDINE GLUCONATE
  21. HYDROCORTISONE [Concomitant]
     Active Substance: HYDROCORTISONE
  22. KETOCONAZOLE [Concomitant]
     Active Substance: KETOCONAZOLE
  23. KETOROLAC [Concomitant]
     Active Substance: KETOROLAC TROMETHAMINE
     Indication: Pain
  24. LEVOFLOXACIN [Concomitant]
     Active Substance: LEVOFLOXACIN
  25. LEVOTHYROXINE [Concomitant]
     Active Substance: LEVOTHYROXINE
  26. LIDOCAINE [Concomitant]
     Active Substance: LIDOCAINE
  27. LORATADINE [Concomitant]
     Active Substance: LORATADINE
  28. METHOCARBAMOL [Concomitant]
     Active Substance: METHOCARBAMOL
  29. METOCLOPRAMIDE [Concomitant]
     Active Substance: METOCLOPRAMIDE
  30. MOVANTIK [Concomitant]
     Active Substance: NALOXEGOL OXALATE
  31. MOXIFLOXACIN [Concomitant]
     Active Substance: MOXIFLOXACIN
  32. VITAMINS [Concomitant]
     Active Substance: VITAMINS
  33. MUPIROCIN [Concomitant]
     Active Substance: MUPIROCIN
  34. MYRBETRIQ [Concomitant]
     Active Substance: MIRABEGRON
  35. NICOTINE [Concomitant]
     Active Substance: NICOTINE
  36. NICOTROL [Concomitant]
     Active Substance: NICOTINE
  37. NITROGLYCERIN [Concomitant]
     Active Substance: NITROGLYCERIN
  38. OMEPRAZOLE [Concomitant]
     Active Substance: OMEPRAZOLE
  39. ONDANSETRON [Concomitant]
     Active Substance: ONDANSETRON
  40. PANTOPRAZOLE [Concomitant]
     Active Substance: PANTOPRAZOLE
  41. PATADAY [Concomitant]
     Active Substance: OLOPATADINE HYDROCHLORIDE
  42. PENICILLIN [Concomitant]
     Active Substance: PENICILLIN
  43. PROAIR HFA [Concomitant]
     Active Substance: ALBUTEROL SULFATE
  44. DEVICE [Concomitant]
     Active Substance: DEVICE
  45. RESTASIS [Concomitant]
     Active Substance: CYCLOSPORINE
  46. ROZEREM [Concomitant]
     Active Substance: RAMELTEON
  47. SENEXON [SENNA SPP.] [Concomitant]
  48. DOCUSATE\SENNOSIDES [Concomitant]
     Active Substance: DOCUSATE\SENNOSIDES
  49. SENNA PLUS [Concomitant]
     Active Substance: DOCUSATE SODIUM\SENNOSIDES\SENNOSIDES A AND B
  50. SOOLANTRA [Concomitant]
     Active Substance: IVERMECTIN
  51. SUCRALFATE [Concomitant]
     Active Substance: SUCRALFATE
  52. SULFAMETHOXAZOLE [Concomitant]
     Active Substance: SULFAMETHOXAZOLE
  53. SUPREP BOWEL PREP [Concomitant]
     Active Substance: MAGNESIUM SULFATE\POTASSIUM SULFATE\SODIUM SULFATE
  54. TAMSULOSIN [Concomitant]
     Active Substance: TAMSULOSIN
  55. TERBINAFINE [Concomitant]
     Active Substance: TERBINAFINE
  56. TRIAMCINOLONE [Concomitant]
     Active Substance: TRIAMCINOLONE
  57. URIBEL [Concomitant]
     Active Substance: HYOSCYAMINE SULFATE\METHENAMINE\METHYLENE BLUE\PHENYL SALICYLATE\SODIUM PHOSPHATE, MONOBASIC, MONOHY
  58. VIAGRA [Concomitant]
     Active Substance: SILDENAFIL CITRATE
  59. VITAMIN D NOS [Concomitant]
     Active Substance: VITAMIN D NOS
  60. VITAMIN D2 [Concomitant]
     Active Substance: ERGOCALCIFEROL
  61. VITAMIN D3 [Concomitant]
     Active Substance: CHOLECALCIFEROL
  62. ZOLPIDEM [Concomitant]
     Active Substance: ZOLPIDEM TARTRATE
  63. AZITHROMYCIN [Concomitant]
     Active Substance: AZITHROMYCIN
  64. BACITRACIN [Concomitant]
     Active Substance: BACITRACIN
  65. CEPHALEXIN [Concomitant]
     Active Substance: CEPHALEXIN
  66. CIPROFLOXACIN HYDROCHLORIDE [Concomitant]
     Active Substance: CIPROFLOXACIN HYDROCHLORIDE
  67. COLACE [Concomitant]
     Active Substance: DOCUSATE SODIUM
  68. ELIDEL [Concomitant]
     Active Substance: PIMECROLIMUS

REACTIONS (11)
  - Chronic kidney disease [Not Recovered/Not Resolved]
  - Spinal compression fracture [Not Recovered/Not Resolved]
  - Renal failure [Not Recovered/Not Resolved]
  - Pain [Not Recovered/Not Resolved]
  - Emotional distress [Not Recovered/Not Resolved]
  - Anxiety [Not Recovered/Not Resolved]
  - Anhedonia [Not Recovered/Not Resolved]
  - Hypertension [Not Recovered/Not Resolved]
  - Blood creatinine increased [Unknown]
  - Decreased activity [Not Recovered/Not Resolved]
  - Fatigue [Not Recovered/Not Resolved]

NARRATIVE: CASE EVENT DATE: 20100101
